FAERS Safety Report 24007206 (Version 1)
Quarter: 2024Q2

REPORT INFORMATION
  Report Type: Spontaneous
  Country: US (occurrence: US)
  Receive Date: 20240624
  Receipt Date: 20240624
  Transmission Date: 20240716
  Serious: No
  Sender: FDA-Public Use
  Company Number: US-BIOGEN-2024BI01270090

PATIENT
  Sex: Male

DRUGS (1)
  1. QALSODY [Suspect]
     Active Substance: TOFERSEN
     Indication: Amyotrophic lateral sclerosis
     Route: 050
     Dates: start: 20240614

REACTIONS (2)
  - Musculoskeletal pain [Recovered/Resolved]
  - Pain in extremity [Recovered/Resolved]

NARRATIVE: CASE EVENT DATE: 20240616
